FAERS Safety Report 25936457 (Version 1)
Quarter: 2025Q4

REPORT INFORMATION
  Report Type: Spontaneous
  Country: EU (occurrence: EU)
  Receive Date: 20251017
  Receipt Date: 20251017
  Transmission Date: 20260118
  Serious: Yes (Other)
  Sender: Harrow Health
  Company Number: OTH

PATIENT
  Sex: Male

DRUGS (1)
  1. VIGAMOX [Suspect]
     Active Substance: MOXIFLOXACIN HYDROCHLORIDE
     Indication: Pneumonia pneumococcal
     Dosage: 2 DRP, TID (INTRANASALLY)
     Dates: end: 2025

REACTIONS (7)
  - Psychotic disorder [Recovered/Resolved]
  - Crying [Recovered/Resolved]
  - Irritability [Recovered/Resolved]
  - Restlessness [Recovered/Resolved]
  - Screaming [Recovered/Resolved]
  - Insomnia [Recovered/Resolved]
  - Off label use [Unknown]
